FAERS Safety Report 8971698 (Version 1)
Quarter: 2012Q4

REPORT INFORMATION
  Report Type: 
  Country: DE (occurrence: DE)
  Receive Date: 20121217
  Receipt Date: 20121217
  Transmission Date: 20130627
  Serious: Yes (Other)
  Sender: FDA-Public Use
  Company Number: DE-BRISTOL-MYERS SQUIBB COMPANY-17221664

PATIENT
  Age: 1 Day
  Sex: Male
  Weight: 1.5 kg

DRUGS (1)
  1. LITALIR [Suspect]
     Dosage: 2 x 500mg/day
     Route: 064

REACTIONS (1)
  - Premature baby [Unknown]
